FAERS Safety Report 10548177 (Version 1)
Quarter: 2014Q4

REPORT INFORMATION
  Report Type: Spontaneous
  Country: US (occurrence: None)
  Receive Date: 20141027
  Receipt Date: 20141027
  Transmission Date: 20150529
  Serious: No
  Sender: FDA-Public Use
  Company Number: None

PATIENT
  Age: 64 Year
  Sex: Female
  Weight: 97.98 kg

DRUGS (1)
  1. PROPAFENONE. [Suspect]
     Active Substance: PROPAFENONE
     Indication: ATRIAL FIBRILLATION
     Route: 048
     Dates: start: 20141016, end: 20141017

REACTIONS (5)
  - Feeling hot [None]
  - Anxiety [None]
  - Nervous system disorder [None]
  - Abdominal pain upper [None]
  - Erythema [None]

NARRATIVE: CASE EVENT DATE: 20141017
